FAERS Safety Report 7079247-4 (Version None)
Quarter: 2010Q4

REPORT INFORMATION
  Report Type: 
  Country: None (occurrence: None)
  Receive Date: 20101102
  Receipt Date: 20101025
  Transmission Date: 20110411
  Serious: Yes (Disabling)
  Sender: FDA-Public Use
  Company Number: GXKR2010GB11215

PATIENT
  Age: 50 Year
  Sex: Female
  Weight: 78 kg

DRUGS (15)
  1. FLUOROURACIL [Suspect]
     Indication: BREAST CANCER
     Dosage: UNK
     Route: 042
     Dates: start: 20091120, end: 20100219
  2. EPIRUBICIN [Suspect]
     Indication: BREAST CANCER
     Dosage: 192 MG
     Route: 042
     Dates: start: 20090828, end: 20091030
  3. METHOTREXATE (NGX) [Suspect]
     Indication: BREAST CANCER
     Dosage: UNK
     Route: 042
     Dates: start: 20091120, end: 20100219
  4. CYCLOPHOSPHAMIDE [Suspect]
     Indication: BREAST CANCER
     Dosage: UNK
     Route: 042
     Dates: start: 20091120, end: 20100219
  5. APREPITANT [Concomitant]
     Indication: NAUSEA
     Dosage: UNK
     Route: 048
     Dates: start: 20100201, end: 20100201
  6. APREPITANT [Concomitant]
     Indication: VOMITING
  7. CYCLIZINE [Concomitant]
     Indication: NAUSEA
     Dosage: 50 MG, TID
     Route: 048
     Dates: start: 20100201, end: 20100201
  8. CYCLIZINE [Concomitant]
     Indication: VOMITING
  9. DEXAMETHASONE [Concomitant]
     Indication: NAUSEA
     Dosage: UNK
     Route: 065
     Dates: start: 20090801, end: 20100201
  10. DEXAMETHASONE [Concomitant]
     Indication: VOMITING
  11. LORAZEPAM [Concomitant]
     Indication: NAUSEA
     Dosage: UNK
     Route: 065
     Dates: start: 20090801, end: 20100201
  12. LORAZEPAM [Concomitant]
     Indication: VOMITING
  13. ONDANSETRON [Concomitant]
     Indication: NAUSEA
     Dosage: UNK
     Route: 065
     Dates: start: 20090801, end: 20100201
  14. ONDANSETRON [Concomitant]
     Indication: VOMITING
  15. TAMOXIFEN CITRATE [Concomitant]
     Indication: BREAST CANCER
     Dosage: 20 MG, QD
     Route: 048
     Dates: start: 20100201, end: 20100701

REACTIONS (1)
  - DEAFNESS NEUROSENSORY [None]
